FAERS Safety Report 10977510 (Version 1)
Quarter: 2015Q1

REPORT INFORMATION
  Report Type: Spontaneous
  Country: US (occurrence: None)
  Receive Date: 20150226
  Receipt Date: 20150226
  Transmission Date: 20150721
  Serious: No
  Sender: FDA-Public Use
  Company Number: TPA2009A03074

PATIENT
  Sex: Male

DRUGS (2)
  1. ULORIC [Suspect]
     Active Substance: FEBUXOSTAT
     Indication: BLOOD URIC ACID INCREASED
     Dosage: 40 MG, UNKNOWN, PER ORAL
     Route: 048
     Dates: start: 2009
  2. PROBENECID (PROBENECID) [Concomitant]

REACTIONS (1)
  - Blood uric acid increased [None]

NARRATIVE: CASE EVENT DATE: 2009
